FAERS Safety Report 5049252-8 (Version None)
Quarter: 2006Q3

REPORT INFORMATION
  Report Type: 
  Country: None (occurrence: None)
  Receive Date: 20060707
  Receipt Date: 20060622
  Transmission Date: 20061208
  Serious: Yes (Congenital Anomaly)
  Sender: FDA-Public Use
  Company Number: 8017524

PATIENT
  Sex: 0

DRUGS (1)
  1. KEPPRA [Suspect]
     Dosage: TRP
     Route: 064

REACTIONS (3)
  - DRUG EXPOSURE DURING PREGNANCY [None]
  - LIMB HYPOPLASIA CONGENITAL [None]
  - ULTRASOUND ANTENATAL SCREEN ABNORMAL [None]
